FAERS Safety Report 18400856 (Version 1)
Quarter: 2020Q4

REPORT INFORMATION
  Report Type: Spontaneous
  Country: US (occurrence: US)
  Receive Date: 20201020
  Receipt Date: 20201020
  Transmission Date: 20210114
  Serious: No
  Sender: FDA-Public Use
  Company Number: US-009507513-2010USA005696

PATIENT
  Sex: Female

DRUGS (1)
  1. FOSAMAX [Suspect]
     Active Substance: ALENDRONATE SODIUM
     Indication: OSTEOPENIA
     Dosage: 70 MG ONCE PER WEEK
     Route: 048
     Dates: start: 2014, end: 201909

REACTIONS (2)
  - Insomnia [Recovered/Resolved]
  - Myalgia [Recovered/Resolved]
